FAERS Safety Report 13598351 (Version 3)
Quarter: 2017Q4

REPORT INFORMATION
  Report Type: Spontaneous
  Country: US (occurrence: US)
  Receive Date: 20170531
  Receipt Date: 20171011
  Transmission Date: 20180320
  Serious: No
  Sender: FDA-Public Use
  Company Number: US-PFIZER INC-2017235697

PATIENT
  Age: 55 Year
  Sex: Female

DRUGS (12)
  1. ELLENCE [Concomitant]
     Active Substance: EPIRUBICIN HYDROCHLORIDE
     Indication: CHEMOTHERAPY
     Dosage: UNK
  2. TAXOTERE [Concomitant]
     Active Substance: DOCETAXEL
     Dosage: UNK
  3. DOCETAXEL. [Suspect]
     Active Substance: DOCETAXEL
     Indication: CHEMOTHERAPY
     Dosage: 215 MG, EVERY 3 WEEKS (SIX CYCLES)
     Dates: start: 20151203, end: 20160415
  4. CYTOXAN [Concomitant]
     Active Substance: CYCLOPHOSPHAMIDE
     Dosage: UNK
  5. NAPROXEN. [Concomitant]
     Active Substance: NAPROXEN
     Dosage: UNK, REGULARLY
     Dates: start: 2008
  6. SERTRALINE [Concomitant]
     Active Substance: SERTRALINE HYDROCHLORIDE
     Dosage: UNK, REGULARLY
     Dates: start: 2011
  7. FLUTICASONE. [Concomitant]
     Active Substance: FLUTICASONE
     Dosage: UNK, REGULARLY
     Dates: start: 2011
  8. DOCETAXEL. [Suspect]
     Active Substance: DOCETAXEL
     Indication: BREAST CANCER FEMALE
  9. CARBOPLATIN. [Concomitant]
     Active Substance: CARBOPLATIN
     Indication: CHEMOTHERAPY
     Dosage: UNK
  10. EPIRUBICIN [Concomitant]
     Active Substance: EPIRUBICIN
     Indication: CHEMOTHERAPY
     Dosage: UNK
  11. PARAPLATIN [Concomitant]
     Active Substance: CARBOPLATIN
     Indication: CHEMOTHERAPY
     Dosage: UNK
  12. ESOMEPRAZOLE [Concomitant]
     Active Substance: ESOMEPRAZOLE
     Dosage: UNK, REGULARLY
     Dates: start: 19990303

REACTIONS (5)
  - Madarosis [Not Recovered/Not Resolved]
  - Hair texture abnormal [Not Recovered/Not Resolved]
  - Hair colour changes [Not Recovered/Not Resolved]
  - Hair disorder [Not Recovered/Not Resolved]
  - Alopecia [Not Recovered/Not Resolved]

NARRATIVE: CASE EVENT DATE: 20151210
